FAERS Safety Report 8395569-9 (Version None)
Quarter: 2012Q2

REPORT INFORMATION
  Report Type: 
  Country: None (occurrence: None)
  Receive Date: 20120530
  Receipt Date: 20110908
  Transmission Date: 20120825
  Serious: No
  Sender: FDA-Public Use
  Company Number: US-GLAXOSMITHKLINE-A0943903A

PATIENT
  Age: 80 Year
  Sex: Female

DRUGS (8)
  1. METHIMAZOLE [Concomitant]
  2. GABAPENTIN [Concomitant]
  3. CHEMOTHERAPY [Concomitant]
  4. ANTIBIOTICS [Concomitant]
  5. VENTOLIN [Suspect]
     Indication: CHRONIC OBSTRUCTIVE PULMONARY DISEASE
     Dosage: 2PUFF AS REQUIRED
     Route: 055
     Dates: start: 20100101
  6. SYMBICORT [Concomitant]
  7. PROVENTIL [Concomitant]
  8. IRON [Concomitant]

REACTIONS (2)
  - PRODUCT QUALITY ISSUE [None]
  - THERAPEUTIC RESPONSE DECREASED [None]
